FAERS Safety Report 8515835-3 (Version None)
Quarter: 2012Q3

REPORT INFORMATION
  Report Type: 
  Country: None (occurrence: None)
  Receive Date: 20120717
  Receipt Date: 20120712
  Transmission Date: 20120928
  Serious: Yes (Other)
  Sender: FDA-Public Use
  Company Number: US-PFIZER INC-2012168540

PATIENT
  Sex: Female
  Weight: 68 kg

DRUGS (3)
  1. LISDEXAMFETAMINE [Concomitant]
     Indication: ATTENTION DEFICIT/HYPERACTIVITY DISORDER
     Dosage: UNK
  2. PRISTIQ [Suspect]
     Indication: MAJOR DEPRESSION
     Dosage: 50 MG, 1X/DAY
     Route: 048
     Dates: start: 20120401, end: 20120401
  3. PRISTIQ [Suspect]
     Dosage: 25 MG, 1X/DAY
     Route: 048
     Dates: start: 20120401

REACTIONS (3)
  - VISUAL IMPAIRMENT [None]
  - MALAISE [None]
  - FEELING ABNORMAL [None]
